FAERS Safety Report 6910284-3 (Version None)
Quarter: 2010Q3

REPORT INFORMATION
  Report Type: 
  Country: None (occurrence: None)
  Receive Date: 20100716
  Receipt Date: 20090902
  Transmission Date: 20110219
  Serious: Yes (Other)
  Sender: FDA-Public Use
  Company Number: 2009244216

PATIENT
  Age: 58 Year
  Sex: Female
  Weight: 124.7 kg

DRUGS (3)
  1. CELEBREX [Suspect]
     Indication: ARTHRITIS
     Dosage: 200 MG, 2X/DAY
     Dates: start: 20000101, end: 20090301
  2. CELEBREX [Suspect]
     Indication: ROAD TRAFFIC ACCIDENT
     Dosage: 200 MG, 2X/DAY
     Dates: start: 20000101, end: 20090301
  3. NADOLOL [Concomitant]

REACTIONS (1)
  - RENAL FAILURE [None]
